FAERS Safety Report 21355341 (Version 3)
Quarter: 2022Q4

REPORT INFORMATION
  Report Type: Spontaneous
  Country: US (occurrence: US)
  Receive Date: 20220920
  Receipt Date: 20221213
  Transmission Date: 20230112
  Serious: Yes (Other)
  Sender: FDA-Public Use
  Company Number: US-NOVARTISPH-NVSC2022US211403

PATIENT
  Sex: Male

DRUGS (2)
  1. TRILEPTAL [Suspect]
     Active Substance: OXCARBAZEPINE
     Indication: Back pain
     Dosage: 150 MG, TID
     Route: 065
     Dates: start: 20201210, end: 20210127
  2. LISINOPRIL [Suspect]
     Active Substance: LISINOPRIL
     Indication: Renal disorder
     Dosage: 2.5 MG
     Route: 065
     Dates: end: 20221025

REACTIONS (51)
  - Nephritis [Unknown]
  - Type 2 diabetes mellitus [Unknown]
  - Nephrolithiasis [Unknown]
  - Brain injury [Unknown]
  - Sepsis [Unknown]
  - Erectile dysfunction [Unknown]
  - Hallucination [Unknown]
  - Delirium [Unknown]
  - Suicidal behaviour [Unknown]
  - Renal disorder [Unknown]
  - Skin irritation [Unknown]
  - Pain [Unknown]
  - Injury [Unknown]
  - Autoscopy [Unknown]
  - Clumsiness [Unknown]
  - Emotional distress [Unknown]
  - Glycosylated haemoglobin increased [Unknown]
  - Pollakiuria [Unknown]
  - Feeling abnormal [Unknown]
  - Post-traumatic stress disorder [Unknown]
  - Renal cyst [Unknown]
  - Blood disorder [Unknown]
  - Fear [Unknown]
  - Anger [Unknown]
  - Mania [Unknown]
  - Balance disorder [Unknown]
  - Aggression [Unknown]
  - Psychotic disorder [Unknown]
  - Delusion [Unknown]
  - Anxiety [Unknown]
  - Urinary tract infection [Unknown]
  - Gait disturbance [Unknown]
  - Toothache [Unknown]
  - Cognitive disorder [Unknown]
  - Panic disorder [Unknown]
  - Coordination abnormal [Unknown]
  - Depression [Unknown]
  - Myalgia [Unknown]
  - Dizziness [Unknown]
  - Confusional state [Unknown]
  - Fatigue [Unknown]
  - Amnesia [Unknown]
  - Hypersensitivity [Unknown]
  - Visual impairment [Unknown]
  - Ataxia [Unknown]
  - Headache [Unknown]
  - Nervousness [Unknown]
  - Dyspnoea [Unknown]
  - Nausea [Unknown]
  - Diarrhoea [Unknown]
  - Product use in unapproved indication [Unknown]

NARRATIVE: CASE EVENT DATE: 20220621
